FAERS Safety Report 12855446 (Version 1)
Quarter: 2016Q4

REPORT INFORMATION
  Report Type: Spontaneous
  Country: US (occurrence: US)
  Receive Date: 20161017
  Receipt Date: 20161017
  Transmission Date: 20170207
  Serious: Yes (Disabling)
  Sender: FDA-Public Use
  Company Number: US-ACTELION-A-NJ2016-143437

PATIENT
  Age: 72 Year
  Sex: Male

DRUGS (10)
  1. LEVOTHYROXINE. [Concomitant]
     Active Substance: LEVOTHYROXINE
  2. ALLOPURINOL. [Concomitant]
     Active Substance: ALLOPURINOL
  3. OPSUMIT [Suspect]
     Active Substance: MACITENTAN
     Indication: PULMONARY HYPERTENSION
     Dosage: 10 MG, QD
     Route: 048
     Dates: start: 20160925, end: 20161004
  4. GABAPENTIN. [Concomitant]
     Active Substance: GABAPENTIN
  5. CYMBALTA [Concomitant]
     Active Substance: DULOXETINE HYDROCHLORIDE
  6. MINOCYCLINE [Concomitant]
     Active Substance: MINOCYCLINE\MINOCYCLINE HYDROCHLORIDE
  7. FLOMAX [Concomitant]
     Active Substance: TAMSULOSIN HYDROCHLORIDE
  8. TORSEMIDE. [Concomitant]
     Active Substance: TORSEMIDE
  9. TRAMADOL. [Concomitant]
     Active Substance: TRAMADOL
  10. PRILOSEC [Concomitant]
     Active Substance: OMEPRAZOLE MAGNESIUM

REACTIONS (6)
  - Nail discolouration [Not Recovered/Not Resolved]
  - Chromaturia [Not Recovered/Not Resolved]
  - Loss of consciousness [Recovering/Resolving]
  - Urine odour abnormal [Not Recovered/Not Resolved]
  - Cardiac failure chronic [Unknown]
  - Hypotension [Not Recovered/Not Resolved]
